FAERS Safety Report 8935661 (Version 2)
Quarter: 2013Q1

REPORT INFORMATION
  Report Type: Spontaneous
  Country: IT (occurrence: IT)
  Receive Date: 20121130
  Receipt Date: 20130107
  Transmission Date: 20140127
  Serious: Yes (Hospitalization)
  Sender: FDA-Public Use
  Company Number: IT-PFIZER INC-2012300324

PATIENT
  Age: 40 Year
  Sex: Male

DRUGS (1)
  1. XANAX [Suspect]
     Dosage: 40 DF, TOTAL DOSE
     Route: 048
     Dates: start: 20121126, end: 20121126

REACTIONS (6)
  - Bradykinesia [Recovering/Resolving]
  - Intentional self-injury [Recovering/Resolving]
  - Speech disorder [Recovering/Resolving]
  - Bradyphrenia [Recovering/Resolving]
  - Alcohol use [Recovering/Resolving]
  - Drug abuse [Recovering/Resolving]
